FAERS Safety Report 22109793 (Version 1)
Quarter: 2023Q1

REPORT INFORMATION
  Report Type: Spontaneous
  Country: FR (occurrence: FR)
  Receive Date: 20230317
  Receipt Date: 20230317
  Transmission Date: 20230418
  Serious: Yes (Hospitalization)
  Sender: FDA-Public Use
  Company Number: None

PATIENT
  Age: 54 Year
  Sex: Female
  Weight: 106 kg

DRUGS (7)
  1. VALIUM [Suspect]
     Active Substance: DIAZEPAM
     Indication: Major depression
     Route: 050
     Dates: start: 20220916, end: 20221104
  2. VOGALENE [Suspect]
     Active Substance: METOPIMAZINE
     Indication: Personality disorder
     Dosage: 7.5 MG/J
     Route: 050
     Dates: start: 20220921
  3. AMITRIPTYLINE HYDROCHLORIDE [Suspect]
     Active Substance: AMITRIPTYLINE HYDROCHLORIDE
     Indication: Major depression
     Dosage: 40 MG/J
     Route: 050
     Dates: start: 20220221, end: 20221003
  4. TRIMEPRAZINE [Suspect]
     Active Substance: TRIMEPRAZINE
     Indication: Personality disorder
     Dosage: 10 MG/J
     Route: 050
     Dates: start: 20220825
  5. DULOXETINE [Suspect]
     Active Substance: DULOXETINE
     Indication: Major depression
     Dosage: 90 MG/J
     Route: 050
     Dates: start: 20220825, end: 20221003
  6. CYAMEMAZINE [Suspect]
     Active Substance: CYAMEMAZINE
     Indication: Personality disorder
     Dosage: 160 GOUTTES/JOUR
     Route: 050
     Dates: start: 20220829, end: 20220926
  7. TROSPIUM CHLORIDE [Suspect]
     Active Substance: TROSPIUM CHLORIDE
     Indication: Incontinence
     Dosage: 2 PAR JOUR
     Route: 050
     Dates: start: 20220317

REACTIONS (1)
  - Intestinal pseudo-obstruction [Recovered/Resolved]

NARRATIVE: CASE EVENT DATE: 20220920
